FAERS Safety Report 17889146 (Version 1)
Quarter: 2020Q2

REPORT INFORMATION
  Report Type: Report from Study
  Country: MX (occurrence: MX)
  Receive Date: 20200612
  Receipt Date: 20200612
  Transmission Date: 20200714
  Serious: Yes (Other)
  Sender: FDA-Public Use
  Company Number: NVSC2020MX159959

PATIENT
  Age: 71 Year
  Sex: Female

DRUGS (2)
  1. CALTRATE WITH VITAMIN D [Concomitant]
     Active Substance: CALCIUM CARBONATE\CHOLECALCIFEROL
     Indication: PRODUCT USED FOR UNKNOWN INDICATION
     Dosage: 1 DF, QD
     Route: 065
     Dates: start: 2014
  2. LETROZOLE. [Suspect]
     Active Substance: LETROZOLE
     Indication: BREAST CANCER
     Dosage: 1 DF, QD
     Route: 065
     Dates: start: 201410

REACTIONS (3)
  - Breast cancer recurrent [Recovering/Resolving]
  - Wound complication [Recovering/Resolving]
  - Breast mass [Recovering/Resolving]

NARRATIVE: CASE EVENT DATE: 2016
